FAERS Safety Report 8627251 (Version 2)
Quarter: 2012Q4

REPORT INFORMATION
  Report Type: 
  Country: US (occurrence: US)
  Receive Date: 20120621
  Receipt Date: 20121022
  Transmission Date: 20130627
  Serious: No
  Sender: FDA-Public Use
  Company Number: US-BIOGENIDEC-2012BI021241

PATIENT
  Sex: Female

DRUGS (1)
  1. TYSABRI [Suspect]
     Indication: MULTIPLE SCLEROSIS
     Route: 042
     Dates: start: 20110909, end: 20120831

REACTIONS (7)
  - Anaemia [Unknown]
  - Red blood cell count decreased [Unknown]
  - Confusional state [Recovered/Resolved]
  - Loss of consciousness [Recovered/Resolved]
  - Drug intolerance [Not Recovered/Not Resolved]
  - Cell death [Not Recovered/Not Resolved]
  - Fatigue [Not Recovered/Not Resolved]
